FAERS Safety Report 9431514 (Version 1)
Quarter: 2013Q3

REPORT INFORMATION
  Report Type: Spontaneous
  Country: TR (occurrence: TR)
  Receive Date: 20130730
  Receipt Date: 20130730
  Transmission Date: 20140515
  Serious: Yes (Hospitalization)
  Sender: FDA-Public Use
  Company Number: TR-MYLANLABS-2013S1016336

PATIENT
  Age: 29 Year
  Sex: Female

DRUGS (4)
  1. QUETIAPINE [Suspect]
     Indication: INTENTIONAL OVERDOSE
     Dosage: ESTIMATED INGESTION OF 9G
     Route: 048
  2. AMOXICILLIN [Suspect]
     Indication: INTENTIONAL OVERDOSE
     Dosage: ESTIMATED INGESTION OF 5G
     Route: 048
  3. ESCITALOPRAM [Suspect]
     Indication: INTENTIONAL OVERDOSE
     Dosage: ESTIMATED INGESTION OF 280MG
     Route: 048
  4. IBUPROFEN [Suspect]
     Indication: INTENTIONAL OVERDOSE
     Dosage: ESTIMATED INGESTION OF 4G
     Route: 048

REACTIONS (6)
  - Coma [Recovered/Resolved]
  - Tachycardia [Recovered/Resolved]
  - Hypotension [Recovered/Resolved]
  - Toxicity to various agents [Recovered/Resolved]
  - Intentional overdose [Recovered/Resolved]
  - Suicide attempt [Recovered/Resolved]
